FAERS Safety Report 5122261-6 (Version None)
Quarter: 2006Q4

REPORT INFORMATION
  Report Type: 
  Country: None (occurrence: None)
  Receive Date: 20061003
  Receipt Date: 20060920
  Transmission Date: 20070319
  Serious: Yes (Hospitalization, Other)
  Sender: FDA-Public Use
  Company Number: HQWYE982225AUG06

PATIENT
  Age: 55 Year
  Sex: Female
  Weight: 90.8 kg

DRUGS (7)
  1. EFFEXOR XR [Suspect]
     Indication: MAJOR DEPRESSION
     Dosage: SEE IMAGE
     Route: 048
     Dates: start: 20060701, end: 20060901
  2. EFFEXOR XR [Suspect]
     Indication: MAJOR DEPRESSION
     Dosage: SEE IMAGE
     Route: 048
     Dates: start: 20041001
  3. EFFEXOR XR [Suspect]
     Indication: MAJOR DEPRESSION
     Dosage: SEE IMAGE
     Route: 048
     Dates: start: 20060901
  4. TRAZODONE HCL [Concomitant]
  5. INDERAL [Concomitant]
  6. ATIVAN [Concomitant]
  7. LOPRESSOR [Concomitant]

REACTIONS (1)
  - CARDIAC VALVE DISEASE [None]
